FAERS Safety Report 6399493-2 (Version None)
Quarter: 2009Q4

REPORT INFORMATION
  Report Type: 
  Country: None (occurrence: None)
  Receive Date: 20091013
  Receipt Date: 20091013
  Transmission Date: 20100525
  Serious: No
  Sender: FDA-Public Use
  Company Number: None

PATIENT
  Sex: Male

DRUGS (1)
  1. AMOXICILLIN 400MG/5ML SUSPENSION 400/5MLS [Suspect]
     Indication: OTITIS MEDIA
     Dosage: 400MG BID ORAL
     Route: 048
     Dates: start: 20090710, end: 20090720

REACTIONS (2)
  - RASH GENERALISED [None]
  - RASH PAPULAR [None]
